FAERS Safety Report 15198249 (Version 2)
Quarter: 2023Q1

REPORT INFORMATION
  Report Type: Spontaneous
  Country: PL (occurrence: PL)
  Receive Date: 20180725
  Receipt Date: 20230221
  Transmission Date: 20230418
  Serious: Yes (Hospitalization, Other)
  Sender: FDA-Public Use
  Company Number: PHHY2018PL052468

PATIENT
  Age: 58 Year
  Sex: Female

DRUGS (2)
  1. AMOXICILLIN\CLAVULANATE POTASSIUM [Suspect]
     Active Substance: AMOXICILLIN\CLAVULANATE POTASSIUM
     Indication: Pneumonia
     Dosage: UNK
     Route: 065
  2. INSULIN NOS [Concomitant]
     Active Substance: INSULIN NOS
     Indication: Type 2 diabetes mellitus
     Dosage: 100 TO 250 MG/DL
     Route: 065

REACTIONS (7)
  - Lung disorder [Unknown]
  - Pneumonia pneumococcal [Unknown]
  - Clostridium difficile infection [Unknown]
  - Cardiac failure [Recovered/Resolved]
  - Acinetobacter bacteraemia [Unknown]
  - Citrobacter infection [Unknown]
  - Drug ineffective [Unknown]
